FAERS Safety Report 20796205 (Version 1)
Quarter: 2022Q2

REPORT INFORMATION
  Report Type: Report from Study
  Country: US (occurrence: US)
  Receive Date: 20220506
  Receipt Date: 20220506
  Transmission Date: 20220721
  Serious: Yes (Hospitalization, Other)
  Sender: FDA-Public Use
  Company Number: US-BIOGEN-2022BI01118567

PATIENT
  Age: 29 Year
  Sex: Female

DRUGS (1)
  1. VUMERITY [Suspect]
     Active Substance: DIROXIMEL FUMARATE
     Indication: Multiple sclerosis
     Route: 048

REACTIONS (8)
  - Hypoaesthesia [Unknown]
  - Loss of consciousness [Unknown]
  - Gait inability [Unknown]
  - Impaired self-care [Unknown]
  - Aphasia [Unknown]
  - Central nervous system lesion [Unknown]
  - Product dose omission issue [Unknown]
  - Paraesthesia [Unknown]

NARRATIVE: CASE EVENT DATE: 20200101
